FAERS Safety Report 4371779-2 (Version None)
Quarter: 2004Q2

REPORT INFORMATION
  Report Type: 
  Country: None (occurrence: None)
  Receive Date: 20040601
  Receipt Date: 20040525
  Transmission Date: 20050107
  Serious: Yes (Hospitalization)
  Sender: FDA-Public Use
  Company Number: TPA2004A00268

PATIENT
  Age: 63 Year
  Sex: Male
  Weight: 169.1917 kg

DRUGS (3)
  1. ACTOS [Suspect]
     Dosage: SEE IMAGE
     Route: 048
     Dates: start: 20030301
  2. AMIODARONE HCL [Suspect]
     Indication: ARRHYTHMIA
  3. RYTHMOL [Concomitant]

REACTIONS (6)
  - ASCITES [None]
  - HEPATIC ATROPHY [None]
  - HEPATIC CIRRHOSIS [None]
  - HEPATIC FAILURE [None]
  - LUNG NEOPLASM [None]
  - PERITONITIS [None]
